FAERS Safety Report 7945613-5 (Version None)
Quarter: 2011Q4

REPORT INFORMATION
  Report Type: 
  Country: None (occurrence: None)
  Receive Date: 20111125
  Receipt Date: 20111116
  Transmission Date: 20120403
  Serious: Yes (Hospitalization)
  Sender: FDA-Public Use
  Company Number: 2011SP044463

PATIENT
  Age: 33 Year
  Sex: Female
  Weight: 70 kg

DRUGS (5)
  1. PUREGON [Concomitant]
  2. GANIRELIX ACETATE INJECTION [Suspect]
     Indication: OOCYTE DONATION
     Dosage: 1 DF;QD
     Dates: start: 20110905, end: 20110909
  3. ELONVA (CORIFOLLITROPIN ALFA / 01398401/ ) [Suspect]
     Indication: OOCYTE DONATION
     Dosage: 150 MCG;ONCE;SC
     Route: 058
     Dates: start: 20110901, end: 20110901
  4. EXFORGE [Concomitant]
  5. SEPRAM [Concomitant]

REACTIONS (13)
  - MIGRAINE [None]
  - DYSARTHRIA [None]
  - HEADACHE [None]
  - VISUAL ACUITY REDUCED [None]
  - CLUMSINESS [None]
  - HEMIPARESIS [None]
  - UNEVALUABLE EVENT [None]
  - NEUROLOGICAL SYMPTOM [None]
  - VISUAL IMPAIRMENT [None]
  - SENSATION OF PRESSURE [None]
  - ATAXIA [None]
  - HYPOAESTHESIA [None]
  - LOW DENSITY LIPOPROTEIN INCREASED [None]
